FAERS Safety Report 20445549 (Version 1)
Quarter: 2022Q1

REPORT INFORMATION
  Report Type: Spontaneous
  Country: US (occurrence: None)
  Receive Date: 20220208
  Receipt Date: 20220208
  Transmission Date: 20220423
  Serious: Yes (Other)
  Sender: FDA-Public Use
  Company Number: None

PATIENT
  Age: 53 Year
  Sex: Female

DRUGS (11)
  1. SOTROVIMAB [Suspect]
     Active Substance: SOTROVIMAB
     Indication: COVID-19
     Route: 042
     Dates: start: 20220128, end: 20220128
  2. MYCOPHENOLIC ACID [Concomitant]
     Active Substance: MYCOPHENOLIC ACID
  3. TACROLIMUS [Concomitant]
     Active Substance: TACROLIMUS
  4. PREDNISONE [Concomitant]
     Active Substance: PREDNISONE
  5. METOPROLOL [Concomitant]
     Active Substance: METOPROLOL
  6. TAMOXIFEN [Concomitant]
     Active Substance: TAMOXIFEN
  7. LORATADINE [Concomitant]
     Active Substance: LORATADINE
  8. MONTELUKAST [Concomitant]
     Active Substance: MONTELUKAST SODIUM
  9. ADVAIR DISKUS [Concomitant]
     Active Substance: FLUTICASONE PROPIONATE\SALMETEROL XINAFOATE
  10. ALBUTEROL SULFATE [Concomitant]
     Active Substance: ALBUTEROL SULFATE
  11. TYLENOL [Concomitant]

REACTIONS (2)
  - Nausea [None]
  - Vomiting [None]

NARRATIVE: CASE EVENT DATE: 20220128
